FAERS Safety Report 9199536 (Version 1)
Quarter: 2013Q1

REPORT INFORMATION
  Report Type: Report from Study
  Country: US (occurrence: US)
  Receive Date: 20130329
  Receipt Date: 20130329
  Transmission Date: 20140127
  Serious: Yes (Other)
  Sender: FDA-Public Use
  Company Number: US-JNJFOC-20130314744

PATIENT
  Sex: Female
  Weight: 84.82 kg

DRUGS (3)
  1. REMICADE [Suspect]
     Indication: CROHN^S DISEASE
     Dosage: 4 VIALS
     Route: 042
  2. ADVAIR [Concomitant]
     Indication: SEASONAL ALLERGY
     Route: 065
  3. PREVACID [Concomitant]
     Indication: DYSPEPSIA
     Route: 065

REACTIONS (1)
  - Arthritis [Not Recovered/Not Resolved]
